FAERS Safety Report 16641976 (Version 1)
Quarter: 2019Q3

REPORT INFORMATION
  Report Type: Spontaneous
  Country: US (occurrence: US)
  Receive Date: 20190729
  Receipt Date: 20190729
  Transmission Date: 20191004
  Serious: Yes (Other)
  Sender: FDA-Public Use
  Company Number: US-BAYER-2019-136588

PATIENT

DRUGS (1)
  1. COPPERTONE SPORT SPF 50 [Suspect]
     Active Substance: AVOBENZONE\HOMOSALATE\OCTISALATE\OCTOCRYLENE\OXYBENZONE
     Dosage: UNK

REACTIONS (3)
  - Chemical burns of eye [Unknown]
  - Accidental exposure to product [None]
  - Ocular discomfort [Unknown]

NARRATIVE: CASE EVENT DATE: 20190721
